FAERS Safety Report 5381124-1 (Version None)
Quarter: 2007Q3

REPORT INFORMATION
  Report Type: 
  Country: None (occurrence: None)
  Receive Date: 20070706
  Receipt Date: 20070704
  Transmission Date: 20080115
  Serious: Yes (Hospitalization)
  Sender: FDA-Public Use
  Company Number: DE-SHR-DE-2007-004771

PATIENT
  Age: 76 Year
  Sex: Male
  Weight: 78 kg

DRUGS (1)
  1. MAGNEVIST [Suspect]
     Dosage: 18 ML, 1 DOSE
     Route: 042
     Dates: start: 20070117, end: 20070117

REACTIONS (14)
  - ABDOMINAL PAIN [None]
  - ARTHRALGIA [None]
  - DIZZINESS [None]
  - FEELING COLD [None]
  - HEADACHE [None]
  - HYPERHIDROSIS [None]
  - JOINT SWELLING [None]
  - LOCAL SWELLING [None]
  - NAUSEA [None]
  - OEDEMA PERIPHERAL [None]
  - RENAL PAIN [None]
  - SENSE OF OPPRESSION [None]
  - SKIN DISORDER [None]
  - TACHYCARDIA [None]
